FAERS Safety Report 4845398-5 (Version None)
Quarter: 2005Q4

REPORT INFORMATION
  Report Type: 
  Country: None (occurrence: None)
  Receive Date: 20051129
  Receipt Date: 20051121
  Transmission Date: 20060501
  Serious: No
  Sender: FDA-Public Use
  Company Number: 2005-134832-NL

PATIENT
  Age: 49 Year
  Sex: Female

DRUGS (6)
  1. MIRTAZAPINE [Suspect]
     Indication: DEPRESSION
     Dosage: 15 MG; ORAL
     Route: 048
     Dates: start: 20051029, end: 20051101
  2. OLANZAPINE [Concomitant]
  3. SULFASALAZINE [Concomitant]
  4. ATORVASTATIN CALCIUM [Concomitant]
  5. BENDROFLUAZIDE [Concomitant]
  6. RAMIPRIL [Concomitant]

REACTIONS (2)
  - MOVEMENT DISORDER [None]
  - SPEECH DISORDER [None]
